FAERS Safety Report 6497423-6 (Version None)
Quarter: 2009Q4

REPORT INFORMATION
  Report Type: 
  Country: None (occurrence: None)
  Receive Date: 20091215
  Receipt Date: 20091209
  Transmission Date: 20100525
  Serious: Yes (Life-Threatening)
  Sender: FDA-Public Use
  Company Number: DE-CELGENEUS-062-C5013-09120777

PATIENT
  Sex: Female

DRUGS (1)
  1. CC-5013 [Suspect]
     Indication: MULTIPLE MYELOMA
     Route: 048
     Dates: start: 20090406

REACTIONS (1)
  - ANAEMIA [None]
